FAERS Safety Report 7702783-1 (Version None)
Quarter: 2011Q3

REPORT INFORMATION
  Report Type: 
  Country: None (occurrence: None)
  Receive Date: 20110823
  Receipt Date: 20110811
  Transmission Date: 20111222
  Serious: Yes (Other)
  Sender: FDA-Public Use
  Company Number: CA-JNJFOC-20110600842

PATIENT
  Sex: Female
  Weight: 62 kg

DRUGS (9)
  1. TRAZODONE HCL [Concomitant]
     Indication: PAIN
  2. REMICADE [Suspect]
     Indication: PRODUCT USED FOR UNKNOWN INDICATION
     Route: 042
     Dates: start: 20110518
  3. REMICADE [Suspect]
     Route: 042
     Dates: start: 20100518, end: 20100828
  4. ADVIL LIQUI-GELS [Concomitant]
     Indication: PAIN
  5. MORPHINE [Concomitant]
     Indication: PAIN
  6. EFFEXOR [Concomitant]
     Indication: DEPRESSION
  7. CLONAZEPAM [Concomitant]
     Indication: PAIN
  8. WELLBUTRIN [Concomitant]
     Indication: DEPRESSION
  9. SYNTHROID [Concomitant]
     Indication: HYPOTHYROIDISM

REACTIONS (4)
  - ANKYLOSING SPONDYLITIS [None]
  - THERAPEUTIC PROCEDURE [None]
  - PREMATURE LABOUR [None]
  - MATERNAL EXPOSURE BEFORE PREGNANCY [None]
